FAERS Safety Report 25989232 (Version 1)
Quarter: 2025Q4

REPORT INFORMATION
  Report Type: Spontaneous
  Country: EU (occurrence: EU)
  Receive Date: 20251103
  Receipt Date: 20251103
  Transmission Date: 20260118
  Serious: Yes (Life-Threatening)
  Sender: NOVARTIS
  Company Number: None

PATIENT
  Age: 50 Year
  Sex: Female

DRUGS (16)
  1. CYCLOSPORINE [Suspect]
     Active Substance: CYCLOSPORINE
     Indication: Immunosuppression
     Dosage: 160 MG, QD
     Route: 042
     Dates: start: 20111024, end: 20111109
  2. CYCLOSPORINE [Suspect]
     Active Substance: CYCLOSPORINE
     Dosage: UNK
     Route: 042
     Dates: start: 20111116
  3. EPREX [Suspect]
     Active Substance: ERYTHROPOIETIN
     Indication: Anaemia
     Dosage: 24000 IU, QW (8000 IU, 3X/WEEK)
     Route: 065
     Dates: start: 20111024
  4. INVANZ [Suspect]
     Active Substance: ERTAPENEM SODIUM
     Indication: Infection
     Dosage: 1 G, QD
     Route: 065
     Dates: start: 20111110, end: 20111114
  5. PROGRAF [Suspect]
     Active Substance: TACROLIMUS
     Indication: Immunosuppression
     Dosage: 3.5 MG, QD
     Route: 065
     Dates: start: 20111107, end: 20111116
  6. CELLCEPT [Suspect]
     Active Substance: MYCOPHENOLATE MOFETIL
     Indication: Immunosuppression
     Dosage: 2 G, QD (1 G, 2X/DAY)
     Route: 065
     Dates: start: 20111024
  7. VFEND [Suspect]
     Active Substance: VORICONAZOLE
     Indication: Infection
     Dosage: 800 MG, QD (400 MG, 2X/DAY)
     Route: 065
     Dates: start: 20111024
  8. ATROVENT [Concomitant]
     Active Substance: IPRATROPIUM BROMIDE
     Indication: Product used for unknown indication
     Dosage: 3 DF DAILY; DOSAGE FORM: UNSPECIFIED
     Route: 065
  9. BRICANYL [Concomitant]
     Active Substance: TERBUTALINE SULFATE
     Indication: Product used for unknown indication
     Dosage: 3 DF DAILY; DOSAGE FORM: UNSPECIFIED
     Route: 065
  10. PREDNISONE [Concomitant]
     Active Substance: PREDNISONE
     Indication: Product used for unknown indication
     Dosage: 35 MG, QD
     Route: 065
  11. DAFALGAN [Concomitant]
     Active Substance: ACETAMINOPHEN
     Indication: Product used for unknown indication
     Dosage: 4 G, QD (1 G, 4X/DAY)
     Route: 065
  12. LEUCOVORIN CALCIUM [Concomitant]
     Active Substance: LEUCOVORIN CALCIUM
     Indication: Product used for unknown indication
     Dosage: 75 MG, QW (25 MG, 3X/WEEK)
     Route: 065
  13. ESOMEPRAZOLE [Concomitant]
     Active Substance: ESOMEPRAZOLE
     Indication: Product used for unknown indication
     Dosage: 40 MG, QD (40 MG DAILY)
     Route: 065
  14. FUROSEMIDE [Concomitant]
     Active Substance: FUROSEMIDE
     Indication: Product used for unknown indication
     Dosage: 40 MG, QD (40 MG DAILY)
     Route: 065
  15. UMULINE [Concomitant]
     Active Substance: INSULIN HUMAN
     Indication: Product used for unknown indication
     Dosage: UNK
     Route: 065
  16. VALACYCLOVIR HYDROCHLORIDE [Concomitant]
     Active Substance: VALACYCLOVIR HYDROCHLORIDE
     Indication: Product used for unknown indication
     Dosage: 200 MG, QD (100 MG, 2X/DAY)
     Route: 065

REACTIONS (2)
  - Partial seizures [Recovering/Resolving]
  - Posterior reversible encephalopathy syndrome [Recovered/Resolved]

NARRATIVE: CASE EVENT DATE: 20111114
